FAERS Safety Report 10245395 (Version 4)
Quarter: 2014Q3

REPORT INFORMATION
  Report Type: Report from Study
  Country: US (occurrence: US)
  Receive Date: 20140618
  Receipt Date: 20140715
  Transmission Date: 20150326
  Serious: Yes (Other)
  Sender: FDA-Public Use
  Company Number: PHEH2014US004280

PATIENT
  Age: 43 Year
  Sex: Male
  Weight: 66.21 kg

DRUGS (6)
  1. GILENYA [Suspect]
     Active Substance: FINGOLIMOD HYDROCHLORIDE
     Indication: MULTIPLE SCLEROSIS
     Dosage: 0.5 MG, QD
     Route: 048
     Dates: start: 20140220
  2. GABAPENTIN. [Concomitant]
     Active Substance: GABAPENTIN
     Dosage: 600 MG, TID
     Route: 048
  3. OXYBUTYNIN [Concomitant]
     Active Substance: OXYBUTYNIN
     Dosage: 10 MG,DAILY
     Route: 048
  4. CIALIS [Concomitant]
     Active Substance: TADALAFIL
     Dosage: 5 MG, DAILY
     Route: 048
  5. AMITIPTYLINE [Concomitant]
     Dosage: 25 MG, DAILY
     Route: 048
  6. VICODIN [Concomitant]
     Active Substance: ACETAMINOPHEN\HYDROCODONE BITARTRATE
     Route: 048

REACTIONS (7)
  - Vomiting [Recovered/Resolved]
  - Nausea [Unknown]
  - Paraesthesia [Unknown]
  - Eye haemorrhage [Unknown]
  - Pain [Unknown]
  - Drug ineffective [Unknown]
  - Vision blurred [Unknown]

NARRATIVE: CASE EVENT DATE: 20140221
